FAERS Safety Report 6919860-5 (Version None)
Quarter: 2010Q3

REPORT INFORMATION
  Report Type: 
  Country: None (occurrence: None)
  Receive Date: 20100811
  Receipt Date: 20100805
  Transmission Date: 20110219
  Serious: Yes (Hospitalization)
  Sender: FDA-Public Use
  Company Number: US-SANOFI-AVENTIS-2010SA021791

PATIENT
  Age: 66 Year
  Sex: Female
  Weight: 81 kg

DRUGS (19)
  1. LANTUS [Suspect]
     Indication: TYPE 1 DIABETES MELLITUS
     Dosage: DOSE:10 UNIT(S)
     Route: 058
     Dates: start: 20050101
  2. OPTICLICK [Suspect]
     Indication: TYPE 1 DIABETES MELLITUS
     Dates: start: 20050101
  3. NOVOLOG [Concomitant]
     Route: 065
  4. ALENDRONATE SODIUM [Concomitant]
  5. PLAVIX [Concomitant]
  6. BENICAR [Concomitant]
  7. IMDUR [Concomitant]
  8. SIMVASTATIN [Concomitant]
  9. LEXAPRO [Concomitant]
  10. OXYBUTYNIN [Concomitant]
  11. CARVEDILOL [Concomitant]
  12. ASPIRIN [Concomitant]
  13. MULTI-VITAMINS [Concomitant]
     Dosage: 1 DAILY
  14. VITAMIN D [Concomitant]
  15. CALCIUM WITH VITAMIN D [Concomitant]
  16. GINKGO BILOBA [Concomitant]
  17. NAPROXEN [Concomitant]
  18. ALBUTEROL SULFATE [Concomitant]
  19. NITROGLYCERIN ^SLOVAKOFARMA^ [Concomitant]
     Dosage: 0.4
     Route: 060

REACTIONS (5)
  - ASTHENIA [None]
  - BLOOD GLUCOSE DECREASED [None]
  - FALL [None]
  - HIP FRACTURE [None]
  - INCOHERENT [None]
